FAERS Safety Report 14694919 (Version 2)
Quarter: 2018Q2

REPORT INFORMATION
  Report Type: Spontaneous
  Country: DE (occurrence: DE)
  Receive Date: 20180329
  Receipt Date: 20180426
  Transmission Date: 20180711
  Serious: Yes (Hospitalization, Other)
  Sender: FDA-Public Use
  Company Number: DE-BRISTOL-MYERS SQUIBB COMPANY-BMS-2018-027619

PATIENT
  Age: 76 Year
  Sex: Male

DRUGS (5)
  1. TRAMAL [Concomitant]
     Active Substance: TRAMADOL
     Indication: SPINAL PAIN
     Dosage: 50 ABSENT, QD (MORNING)
     Route: 065
  2. TRAMAL [Concomitant]
     Active Substance: TRAMADOL
     Indication: ARTHRALGIA
     Dosage: 50 ABSENT, QD (EVENING)
     Route: 065
  3. ELIQUIS [Suspect]
     Active Substance: APIXABAN
     Indication: CEREBROVASCULAR ACCIDENT PROPHYLAXIS
     Dosage: 2.5 MG, BID
     Route: 065
     Dates: start: 2018, end: 20180326
  4. NOVALGIN (METAMIZOLE SODIUM) [Concomitant]
     Active Substance: METAMIZOLE SODIUM
     Indication: PAIN
     Dosage: 500 ABSENT, BID
     Route: 065
  5. MONO EMBOLEX [Suspect]
     Active Substance: CERTOPARIN SODIUM
     Indication: THROMBOSIS PROPHYLAXIS
     Dosage: 8000 IU, QD (EVENING)
     Route: 058
     Dates: start: 20180327, end: 20180406

REACTIONS (4)
  - Seroma [Recovering/Resolving]
  - Prescribed underdose [Unknown]
  - Osteoarthritis [Recovering/Resolving]
  - Anaemia postoperative [Recovering/Resolving]

NARRATIVE: CASE EVENT DATE: 20180328
